APPROVED DRUG PRODUCT: VALPROIC ACID
Active Ingredient: VALPROIC ACID
Strength: 250MG/5ML
Dosage Form/Route: SYRUP;ORAL
Application: A077960 | Product #001
Applicant: LANNETT CO INC
Approved: Oct 13, 2006 | RLD: No | RS: No | Type: DISCN